FAERS Safety Report 23767414 (Version 1)
Quarter: 2024Q2

REPORT INFORMATION
  Report Type: Spontaneous
  Country: FR (occurrence: FR)
  Receive Date: 20240422
  Receipt Date: 20240422
  Transmission Date: 20240716
  Serious: Yes (Hospitalization)
  Sender: FDA-Public Use
  Company Number: None

PATIENT
  Age: 76 Year
  Sex: Female

DRUGS (4)
  1. PACLITAXEL [Suspect]
     Active Substance: PACLITAXEL
     Indication: Chemotherapy
     Dates: start: 20240125, end: 20240125
  2. PERJETA [Suspect]
     Active Substance: PERTUZUMAB
     Indication: Chemotherapy
     Dosage: 420 MG
     Dates: start: 20240125, end: 20240125
  3. HERCEPTIN [Suspect]
     Active Substance: TRASTUZUMAB
     Indication: Chemotherapy
     Dates: start: 20240125, end: 20240125
  4. PERJETA [Suspect]
     Active Substance: PERTUZUMAB
     Indication: Chemotherapy
     Dosage: 420 MG
     Dates: start: 20231103, end: 20231103

REACTIONS (1)
  - Anaphylactoid reaction [Recovered/Resolved]

NARRATIVE: CASE EVENT DATE: 20240125
